FAERS Safety Report 23765211 (Version 1)
Quarter: 2024Q2

REPORT INFORMATION
  Report Type: Spontaneous
  Country: JP (occurrence: JP)
  Receive Date: 20240420
  Receipt Date: 20240420
  Transmission Date: 20240715
  Serious: Yes (Hospitalization, Other)
  Sender: FDA-Public Use
  Company Number: JP-CPL-004176

PATIENT
  Sex: Female

DRUGS (6)
  1. TELMISARTAN [Suspect]
     Active Substance: TELMISARTAN
  2. NIFEDIPINE [Suspect]
     Active Substance: NIFEDIPINE
  3. AZELNIDIPINE [Suspect]
     Active Substance: AZELNIDIPINE
  4. AMLODIPINE BESYLATE [Suspect]
     Active Substance: AMLODIPINE BESYLATE
  5. OLMESARTAN MEDOXOMIL [Suspect]
     Active Substance: OLMESARTAN MEDOXOMIL
  6. VILDAGLIPTIN [Suspect]
     Active Substance: VILDAGLIPTIN

REACTIONS (3)
  - Overdose [Unknown]
  - Angioedema [Unknown]
  - Compartment syndrome [Unknown]
